FAERS Safety Report 12070490 (Version 3)
Quarter: 2016Q2

REPORT INFORMATION
  Report Type: Spontaneous
  Country: IT (occurrence: IT)
  Receive Date: 20160211
  Receipt Date: 20160405
  Transmission Date: 20160815
  Serious: Yes (Other)
  Sender: FDA-Public Use
  Company Number: IT-JNJFOC-20160206500

PATIENT
  Age: 63 Year
  Sex: Male

DRUGS (1)
  1. STELARA [Suspect]
     Active Substance: USTEKINUMAB
     Indication: PSORIASIS
     Route: 058
     Dates: start: 20150714, end: 20151115

REACTIONS (3)
  - Renal atrophy [Not Recovered/Not Resolved]
  - Nephropathy [Not Recovered/Not Resolved]
  - Obstructive uropathy [Not Recovered/Not Resolved]

NARRATIVE: CASE EVENT DATE: 20151001
